FAERS Safety Report 7130673-4 (Version None)
Quarter: 2010Q4

REPORT INFORMATION
  Report Type: 
  Country: None (occurrence: None)
  Receive Date: 20101029
  Receipt Date: 20100730
  Transmission Date: 20110411
  Serious: Yes (Hospitalization)
  Sender: FDA-Public Use
  Company Number: US-003343

PATIENT
  Sex: Male
  Weight: 84 kg

DRUGS (14)
  1. DEGARELIX (240 MG, 80 MG) [Suspect]
     Indication: PROSTATE CANCER
     Dosage: 240 MG 1X SUBCUTANEOUS, 80 MG 1X/MONTH SUBCUTANEOUS
     Route: 058
  2. ASPIRIN [Concomitant]
  3. LEVOXYL [Concomitant]
  4. TOPROL-XL [Concomitant]
  5. CRESTOR [Concomitant]
  6. HYDROCHLOROTHIAZIDE [Concomitant]
  7. VIAGRA [Concomitant]
  8. VITAMIN D [Concomitant]
  9. CALCIUM [Concomitant]
  10. PRAVASTATIN [Concomitant]
  11. WARFARIN [Concomitant]
  12. LOVENOX [Concomitant]
  13. AMBIEN [Concomitant]
  14. ONDANSETRON [Concomitant]

REACTIONS (1)
  - DEEP VEIN THROMBOSIS [None]
